FAERS Safety Report 25085176 (Version 1)
Quarter: 2025Q1

REPORT INFORMATION
  Report Type: Spontaneous
  Country: NL (occurrence: NL)
  Receive Date: 20250317
  Receipt Date: 20250317
  Transmission Date: 20250408
  Serious: Yes (Other)
  Sender: MYLAN
  Company Number: NL-MYLANLABS-2025M1021173

PATIENT
  Age: 35 Year
  Sex: Male
  Weight: 71 kg

DRUGS (1)
  1. EMTRICITABINE\TENOFOVIR DISOPROXIL [Suspect]
     Active Substance: EMTRICITABINE\TENOFOVIR DISOPROXIL
     Indication: HIV infection

REACTIONS (3)
  - Oedema peripheral [Recovered/Resolved]
  - Hypersensitivity [Recovered/Resolved]
  - Rash pruritic [Recovered/Resolved]

NARRATIVE: CASE EVENT DATE: 20250201
